FAERS Safety Report 19279362 (Version 3)
Quarter: 2022Q1

REPORT INFORMATION
  Report Type: Spontaneous
  Country: US (occurrence: US)
  Receive Date: 20210520
  Receipt Date: 20220126
  Transmission Date: 20220423
  Serious: Yes (Other)
  Sender: FDA-Public Use
  Company Number: US-PFIZER INC-2021450277

PATIENT
  Age: 52 Year
  Sex: Female
  Weight: 62.6 kg

DRUGS (2)
  1. FRAGMIN [Suspect]
     Active Substance: DALTEPARIN SODIUM
     Indication: Coagulopathy
     Dosage: 10000 IU, 1X/DAY
  2. FRAGMIN [Suspect]
     Active Substance: DALTEPARIN SODIUM
     Dosage: UNK UNK, DAILY (15000 OR 12500 UNITS DAILY)
     Dates: start: 2019

REACTIONS (3)
  - Complication associated with device [Unknown]
  - Cerebral thrombosis [Unknown]
  - Thrombosis [Unknown]
